FAERS Safety Report 20083006 (Version 2)
Quarter: 2021Q4

REPORT INFORMATION
  Report Type: Spontaneous
  Country: TH (occurrence: TH)
  Receive Date: 20211117
  Receipt Date: 20211209
  Transmission Date: 20220303
  Serious: Yes (Hospitalization, Other)
  Sender: FDA-Public Use
  Company Number: TH-BoehringerIngelheim-2021-BI-136868

PATIENT
  Age: 74 Year
  Sex: Female
  Weight: 49 kg

DRUGS (12)
  1. SPIRIVA [Suspect]
     Active Substance: TIOTROPIUM BROMIDE MONOHYDRATE
     Indication: Dyspnoea
     Dosage: SPIRIVA 1X1
     Dates: start: 20200106
  2. MODURETIC 5-50 [Concomitant]
     Active Substance: AMILORIDE HYDROCHLORIDE\HYDROCHLOROTHIAZIDE
     Indication: Product used for unknown indication
     Dosage: MODURETIC 2 TIMES/WEEK
     Dates: start: 20190916, end: 20191209
  3. MODURETIC 5-50 [Concomitant]
     Active Substance: AMILORIDE HYDROCHLORIDE\HYDROCHLOROTHIAZIDE
     Dosage: MODURETIC ? X1 OD
     Dates: start: 20191209, end: 20200106
  4. MODURETIC 5-50 [Concomitant]
     Active Substance: AMILORIDE HYDROCHLORIDE\HYDROCHLOROTHIAZIDE
     Dosage: MODURETIC ? X1 EOD
     Dates: start: 20200106, end: 20200828
  5. MODURETIC 5-50 [Concomitant]
     Active Substance: AMILORIDE HYDROCHLORIDE\HYDROCHLOROTHIAZIDE
     Dosage: MODURETIC ? X 1
     Dates: start: 20201025
  6. ENALAPRIL [Concomitant]
     Active Substance: ENALAPRIL
     Indication: Product used for unknown indication
     Dosage: ENALAPRIL(5) 1X1
     Dates: start: 20200828, end: 20200916
  7. ALDACTONE [Concomitant]
     Active Substance: SPIRONOLACTONE
     Indication: Product used for unknown indication
     Dosage: ALDACTONE(25) ? X1
     Dates: start: 20200828, end: 20200916
  8. ALDACTONE [Concomitant]
     Active Substance: SPIRONOLACTONE
     Dosage: ALDACTONE(25) 1X2
     Dates: start: 20200916
  9. SILDENAFIL [Concomitant]
     Active Substance: SILDENAFIL
     Indication: Pulmonary hypertension
     Dosage: SILDENAFIL(20) 1X2
     Dates: start: 20200916, end: 20201025
  10. SILDENAFIL [Concomitant]
     Active Substance: SILDENAFIL
     Dosage: SILDENAFIL(20) 1X3
     Dates: start: 20201025
  11. LASIX [Concomitant]
     Active Substance: FUROSEMIDE
     Indication: Product used for unknown indication
     Dosage: LASIX (40) ? X1
     Dates: start: 20200916
  12. HYDROXYCHLOROQUINE SULFATE [Concomitant]
     Active Substance: HYDROXYCHLOROQUINE SULFATE
     Indication: Product used for unknown indication
     Dosage: HCQ(200)1X1
     Dates: start: 20201025

REACTIONS (8)
  - Bronchiectasis [Unknown]
  - Congestive hepatopathy [Unknown]
  - Interstitial lung disease [Not Recovered/Not Resolved]
  - Cardiac failure congestive [Unknown]
  - Pulmonary arterial hypertension [Not Recovered/Not Resolved]
  - Undifferentiated connective tissue disease [Unknown]
  - Interstitial lung disease [Unknown]
  - Interstitial lung disease [Unknown]

NARRATIVE: CASE EVENT DATE: 20200625
